FAERS Safety Report 4580765-9 (Version None)
Quarter: 2005Q1

REPORT INFORMATION
  Report Type: 
  Country: None (occurrence: None)
  Receive Date: 20050214
  Receipt Date: 20040526
  Transmission Date: 20050727
  Serious: Yes (Other)
  Sender: FDA-Public Use
  Company Number: US-GLAXOSMITHKLINE-A0512637A

PATIENT
  Age: 48 Year
  Sex: Female
  Weight: 72.7 kg

DRUGS (5)
  1. LAMICTAL [Suspect]
     Indication: BIPOLAR DISORDER
     Route: 048
     Dates: start: 20031101, end: 20040101
  2. DEPAKOTE [Concomitant]
     Dosage: 1000MG PER DAY
  3. EFFEXOR XR [Concomitant]
  4. TOPROL-XL [Concomitant]
  5. ZYPREXA [Concomitant]

REACTIONS (1)
  - SYNCOPE [None]
